FAERS Safety Report 24318872 (Version 1)
Quarter: 2024Q3

REPORT INFORMATION
  Report Type: Spontaneous
  Country: US (occurrence: US)
  Receive Date: 20240913
  Receipt Date: 20240913
  Transmission Date: 20241016
  Serious: Yes (Hospitalization)
  Sender: VERTEX
  Company Number: US-VERTEX PHARMACEUTICALS-2024-014306

PATIENT

DRUGS (1)
  1. TRIKAFTA [Suspect]
     Active Substance: ELEXACAFTOR\IVACAFTOR\TEZACAFTOR
     Indication: Cystic fibrosis
     Dosage: 2 TAB IN AM, 1 TAB IN PM
     Route: 048

REACTIONS (9)
  - Pneumonia [Unknown]
  - Cough [Recovered/Resolved]
  - Pain [Recovered/Resolved]
  - Sputum increased [Recovered/Resolved]
  - Arthralgia [Recovered/Resolved]
  - Fatigue [Recovered/Resolved]
  - Upper respiratory tract infection [Recovered/Resolved]
  - Headache [Recovered/Resolved]
  - Nasal congestion [Recovered/Resolved]
